FAERS Safety Report 9355965 (Version 1)
Quarter: 2013Q2

REPORT INFORMATION
  Report Type: Spontaneous
  Country: US (occurrence: US)
  Receive Date: 20130619
  Receipt Date: 20130619
  Transmission Date: 20140414
  Serious: Yes (Other)
  Sender: FDA-Public Use
  Company Number: US-TEVA-413397USA

PATIENT
  Sex: Female

DRUGS (1)
  1. FENTORA [Suspect]
     Route: 002

REACTIONS (3)
  - Metastases to central nervous system [Not Recovered/Not Resolved]
  - Malaise [Not Recovered/Not Resolved]
  - Headache [Not Recovered/Not Resolved]
